FAERS Safety Report 18391081 (Version 2)
Quarter: 2020Q4

REPORT INFORMATION
  Report Type: Other
  Country: BR (occurrence: BR)
  Receive Date: 20201015
  Receipt Date: 20201026
  Transmission Date: 20210114
  Serious: Yes (Hospitalization, Other)
  Sender: FDA-Public Use
  Company Number: BR-ROCHE-1532656

PATIENT
  Sex: Female
  Weight: 74 kg

DRUGS (14)
  1. REMICADE [Suspect]
     Active Substance: INFLIXIMAB
     Indication: RHEUMATIC DISORDER
     Route: 065
  2. OMEPRAZOLE. [Concomitant]
     Active Substance: OMEPRAZOLE
  3. LOSARTAN. [Concomitant]
     Active Substance: LOSARTAN
     Indication: HYPERTENSION
     Dosage: 1 TABLET DURING THE DAY AND 1 AT NIGHT
  4. MABTHERA [Suspect]
     Active Substance: RITUXIMAB
     Indication: RHEUMATOID ARTHRITIS
     Dosage: ON 29/JUN/2020, SHE RECEIVED MOST RECENT DOSE OF RITUXIMAB
     Route: 042
     Dates: start: 20191202
  5. ETANERCEPT [Concomitant]
     Active Substance: ETANERCEPT
  6. HYDROCHLOROTHIAZIDE. [Concomitant]
     Active Substance: HYDROCHLOROTHIAZIDE
     Indication: FLUID RETENTION
  7. METHOTREXATE. [Concomitant]
     Active Substance: METHOTREXATE
  8. LOSARTAN. [Concomitant]
     Active Substance: LOSARTAN
     Indication: FLUID RETENTION
  9. HUMIRA [Suspect]
     Active Substance: ADALIMUMAB
     Indication: RHEUMATIC DISORDER
     Route: 065
  10. ARAVA [Concomitant]
     Active Substance: LEFLUNOMIDE
  11. HYDROCHLOROTHIAZIDE. [Concomitant]
     Active Substance: HYDROCHLOROTHIAZIDE
     Indication: HYPERTENSION
     Dosage: 1 TABLET A DAY
  12. DIPYRONE [Concomitant]
     Active Substance: DIPYRONE
     Indication: PAIN
     Dosage: 1 TABLET IN THE MORNING AND 1 AT NIGHT
  13. ACTEMRA [Suspect]
     Active Substance: TOCILIZUMAB
     Indication: RHEUMATOID ARTHRITIS
     Dosage: ON 08/SEP/2020, SHE RECEIVED LAST INFUSION OF TOCILIZUMAB (DOSING REGIMEN NOT REPORTED)
     Route: 042
     Dates: start: 20140227, end: 20141205
  14. PREDNISONE. [Concomitant]
     Active Substance: PREDNISONE

REACTIONS (13)
  - Drug hypersensitivity [Unknown]
  - Rheumatoid arthritis [Not Recovered/Not Resolved]
  - Arrhythmia [Unknown]
  - Pharyngeal disorder [Unknown]
  - Anaemia [Unknown]
  - Urinary tract infection [Unknown]
  - Cough [Not Recovered/Not Resolved]
  - Dyspnoea [Not Recovered/Not Resolved]
  - Somnolence [Unknown]
  - Swelling [Unknown]
  - Renal disorder [Unknown]
  - Blood urine present [Unknown]
  - Hypersensitivity [Unknown]
